FAERS Safety Report 10776568 (Version 1)
Quarter: 2015Q1

REPORT INFORMATION
  Report Type: Spontaneous
  Country: US (occurrence: None)
  Receive Date: 20150205
  Receipt Date: 20150205
  Transmission Date: 20150721
  Serious: No
  Sender: FDA-Public Use
  Company Number: None

PATIENT
  Age: 11 Year
  Sex: Male
  Weight: 44.91 kg

DRUGS (1)
  1. TAMIFLU [Suspect]
     Active Substance: OSELTAMIVIR PHOSPHATE
     Indication: INFLUENZA A VIRUS TEST POSITIVE
     Route: 048
     Dates: start: 20150131, end: 20150131

REACTIONS (5)
  - Confusional state [None]
  - Pneumonia [None]
  - Vomiting [None]
  - Hallucination [None]
  - Hyperhidrosis [None]

NARRATIVE: CASE EVENT DATE: 20150131
